FAERS Safety Report 8925721 (Version 1)
Quarter: 2012Q4

REPORT INFORMATION
  Report Type: 
  Country: BE (occurrence: BE)
  Receive Date: 20121126
  Receipt Date: 20121126
  Transmission Date: 20130627
  Serious: Yes (Life-Threatening, Other)
  Sender: FDA-Public Use
  Company Number: BE-ROXANE LABORATORIES, INC.-2012-RO-02431RO

PATIENT
  Age: 26 Year
  Sex: Male

DRUGS (7)
  1. LORAZEPAM [Suspect]
     Indication: SCHIZOID PERSONALITY DISORDER
     Dosage: 5 mg
  2. QUETIAPINE FUMARATE [Suspect]
     Indication: SCHIZOID PERSONALITY DISORDER
     Dosage: 900 mg
  3. CLOTIAPINE [Suspect]
     Indication: SCHIZOID PERSONALITY DISORDER
     Dosage: 40 mg
  4. TRAZODONE [Suspect]
     Indication: SCHIZOID PERSONALITY DISORDER
     Dosage: 200 mg
  5. LAMOTRIGINE [Suspect]
     Indication: SCHIZOID PERSONALITY DISORDER
     Dosage: 200 mg
  6. ESCITALOPRAM [Suspect]
     Indication: SCHIZOID PERSONALITY DISORDER
     Dosage: 10 mg
  7. ZUCLOPENTHIXOL [Suspect]
     Indication: SCHIZOID PERSONALITY DISORDER

REACTIONS (2)
  - Necrotising colitis [Recovered/Resolved]
  - Overdose [Unknown]
